FAERS Safety Report 16858123 (Version 2)
Quarter: 2019Q3

REPORT INFORMATION
  Report Type: Spontaneous
  Country: PT (occurrence: PT)
  Receive Date: 20190926
  Receipt Date: 20190926
  Transmission Date: 20191005
  Serious: Yes (Hospitalization, Other)
  Sender: FDA-Public Use
  Company Number: PT-JNJFOC-20190924508

PATIENT
  Age: 69 Year
  Sex: Male

DRUGS (2)
  1. RISPERIDONE. [Suspect]
     Active Substance: RISPERIDONE
     Indication: MIXED DEMENTIA
     Dosage: INCREASING THE RISPERIDONE DOSE FROM 1.5MG / DAY TO 1.75MG / DAY THE DAY BEFORE
     Route: 065
  2. RISPERIDONE. [Suspect]
     Active Substance: RISPERIDONE
     Dosage: INCREASING THE RISPERIDONE DOSE FROM 1.5MG / DAY TO 1.75MG / DAY THE DAY BEFORE
     Route: 065

REACTIONS (1)
  - Toxic encephalopathy [Recovering/Resolving]
